FAERS Safety Report 7728633-5 (Version None)
Quarter: 2011Q3

REPORT INFORMATION
  Report Type: 
  Country: None (occurrence: None)
  Receive Date: 20110817
  Receipt Date: 20110609
  Transmission Date: 20111222
  Serious: Yes (Life-Threatening, Hospitalization, Other)
  Sender: FDA-Public Use
  Company Number: 201110650

PATIENT
  Sex: Male

DRUGS (1)
  1. LIORESAL [Suspect]
     Indication: MUSCLE SPASTICITY
     Dosage: INTRATHECAL
     Route: 037

REACTIONS (11)
  - MECHANICAL VENTILATION [None]
  - ADVERSE DRUG REACTION [None]
  - INJECTION SITE ANAESTHESIA [None]
  - MALAISE [None]
  - HOSPITALISATION [None]
  - LOSS OF CONSCIOUSNESS [None]
  - PARAESTHESIA [None]
  - OVERDOSE [None]
  - INJECTION SITE PAIN [None]
  - INTENSIVE CARE [None]
  - ENDOTRACHEAL INTUBATION [None]
